FAERS Safety Report 6253833-3 (Version None)
Quarter: 2009Q2

REPORT INFORMATION
  Report Type: 
  Country: None (occurrence: None)
  Receive Date: 20090630
  Receipt Date: 20090630
  Transmission Date: 20091009
  Serious: No
  Sender: FDA-Public Use
  Company Number: None

PATIENT
  Sex: Female
  Weight: 81.1939 kg

DRUGS (1)
  1. SERTRALINE [Suspect]
     Indication: DYSTHYMIC DISORDER
     Dosage: 50MG DAILY ORAL IN RECENT
     Route: 048

REACTIONS (5)
  - DIARRHOEA [None]
  - MALAISE [None]
  - NAUSEA [None]
  - PRODUCT SUBSTITUTION ISSUE [None]
  - VOMITING [None]
